FAERS Safety Report 10043404 (Version 1)
Quarter: 2014Q1

REPORT INFORMATION
  Report Type: Spontaneous
  Country: WF (occurrence: None)
  Receive Date: 20140304
  Receipt Date: 20140304
  Transmission Date: 20141002
  Serious: Yes (Other)
  Sender: FDA-Public Use
  Company Number: 2014P1001578

PATIENT
  Age: 33 Year
  Sex: Female

DRUGS (1)
  1. DOXYCYCLINE [Suspect]
     Indication: ACNE
     Route: 048

REACTIONS (10)
  - Nausea [None]
  - Headache [None]
  - Disinhibition [None]
  - Irritability [None]
  - Anxiety [None]
  - Depressed mood [None]
  - Social avoidant behaviour [None]
  - Indifference [None]
  - Suicidal ideation [None]
  - Self-injurious ideation [None]
